FAERS Safety Report 23701877 (Version 1)
Quarter: 2024Q2

REPORT INFORMATION
  Report Type: Spontaneous
  Country: JP (occurrence: JP)
  Receive Date: 20240403
  Receipt Date: 20240403
  Transmission Date: 20240716
  Serious: Yes (Hospitalization, Other)
  Sender: FDA-Public Use
  Company Number: JP-UCBJ-CD202402761UCBPHAPROD

PATIENT

DRUGS (10)
  1. LEVETIRACETAM [Suspect]
     Active Substance: LEVETIRACETAM
     Indication: Partial seizures
     Dosage: UNK
     Route: 048
  2. LEVETIRACETAM [Suspect]
     Active Substance: LEVETIRACETAM
     Dosage: 2500 MILLIGRAM
     Route: 048
  3. CARBAMAZEPINE [Concomitant]
     Active Substance: CARBAMAZEPINE
     Indication: Partial seizures
     Dosage: UNK
  4. PHENOBARBITAL [Concomitant]
     Active Substance: PHENOBARBITAL
     Indication: Partial seizures
     Dosage: UNK
  5. GABAPENTIN [Concomitant]
     Active Substance: GABAPENTIN
     Indication: Partial seizures
     Dosage: UNK
  6. NITRAZEPAM [Concomitant]
     Active Substance: NITRAZEPAM
     Indication: Partial seizures
     Dosage: UNK
  7. CLONAZEPAM [Concomitant]
     Active Substance: CLONAZEPAM
     Indication: Partial seizures
     Dosage: UNK
  8. TOPIRAMATE [Concomitant]
     Active Substance: TOPIRAMATE
     Indication: Partial seizures
     Dosage: UNK
  9. VALPROATE SODIUM [Concomitant]
     Active Substance: VALPROATE SODIUM
     Indication: Partial seizures
     Dosage: 800 MILLIGRAM
  10. OLANZAPINE [Concomitant]
     Active Substance: OLANZAPINE
     Indication: Partial seizures
     Dosage: 5 MILLIGRAM

REACTIONS (10)
  - Partial seizures with secondary generalisation [Unknown]
  - Restlessness [Unknown]
  - Focal dyscognitive seizures [Unknown]
  - Tonic convulsion [Unknown]
  - Intentional self-injury [Unknown]
  - Hyperkinesia [Unknown]
  - Automatism [Unknown]
  - Aggression [Unknown]
  - Irritability [Unknown]
  - Multiple-drug resistance [Unknown]
